FAERS Safety Report 5423437-0 (Version None)
Quarter: 2007Q3

REPORT INFORMATION
  Report Type: 
  Country: None (occurrence: None)
  Receive Date: 20070727
  Receipt Date: 20070501
  Transmission Date: 20080115
  Serious: No
  Sender: FDA-Public Use
  Company Number: 263308

PATIENT
  Age: 32 Year
  Sex: Female

DRUGS (1)
  1. LEVEMIR [Suspect]
     Indication: DIABETES MELLITUS
     Dosage: 28 IU, 4X'S A DAY, SUBCUTANEOUS
     Route: 058
     Dates: end: 20070401

REACTIONS (1)
  - BLOOD GLUCOSE INCREASED [None]
